FAERS Safety Report 8138105-4 (Version None)
Quarter: 2012Q1

REPORT INFORMATION
  Report Type: 
  Country: None (occurrence: None)
  Receive Date: 20120215
  Receipt Date: 20120215
  Transmission Date: 20120608
  Serious: Yes (Life-Threatening, Disabling, Other)
  Sender: FDA-Public Use
  Company Number: None

PATIENT
  Age: 74 Year
  Sex: Male
  Weight: 95.254 kg

DRUGS (1)
  1. BISOPROLOL FUMARATE AND HYDROCHLOROTHIAZIDE [Suspect]
     Indication: HYPERTENSION
     Dosage: 1 TAB
     Route: 048

REACTIONS (12)
  - SKIN ULCER [None]
  - FATIGUE [None]
  - VISION BLURRED [None]
  - RASH [None]
  - NIGHT SWEATS [None]
  - EYE DISORDER [None]
  - PRURITUS [None]
  - ERYTHEMA [None]
  - DRY EYE [None]
  - ALOPECIA [None]
  - MUSCLE SPASMS [None]
  - SPIDER VEIN [None]
